FAERS Safety Report 7807174-0 (Version None)
Quarter: 2011Q4

REPORT INFORMATION
  Report Type: 
  Country: None (occurrence: None)
  Receive Date: 20111011
  Receipt Date: 20111001
  Transmission Date: 20120403
  Serious: Yes (Other)
  Sender: FDA-Public Use
  Company Number: PHHY2011CA88780

PATIENT
  Sex: Female

DRUGS (1)
  1. ZOLEDRONIC ACID [Suspect]
     Dosage: 0.05 MG/KG, EVERY 6 MONTHS
     Route: 042

REACTIONS (3)
  - FRACTURE [None]
  - GROSS MOTOR DELAY [None]
  - SCOLIOSIS [None]
